FAERS Safety Report 18361252 (Version 3)
Quarter: 2021Q1

REPORT INFORMATION
  Report Type: Report from Study
  Country: US (occurrence: US)
  Receive Date: 20201008
  Receipt Date: 20210225
  Transmission Date: 20210419
  Serious: No
  Sender: FDA-Public Use
  Company Number: NVSC2020US267471

PATIENT
  Age: 37 Year
  Sex: Male

DRUGS (1)
  1. GLATOPA [Suspect]
     Active Substance: GLATIRAMER ACETATE
     Indication: MULTIPLE SCLEROSIS
     Dosage: 40 MG, Q3W (3X PER WEEK)
     Route: 058
     Dates: start: 20200930

REACTIONS (4)
  - Product dispensing error [Unknown]
  - Injection site pain [Unknown]
  - Syringe issue [Unknown]
  - Wrong device used [Unknown]

NARRATIVE: CASE EVENT DATE: 20200930
